FAERS Safety Report 23734186 (Version 1)
Quarter: 2024Q2

REPORT INFORMATION
  Report Type: Spontaneous
  Country: CA (occurrence: CA)
  Receive Date: 20240412
  Receipt Date: 20240412
  Transmission Date: 20240716
  Serious: Yes (Other)
  Sender: FDA-Public Use
  Company Number: CA-SANDOZ-SDZ2024CA037364

PATIENT
  Age: 23 Year
  Sex: Female

DRUGS (2)
  1. STELARA [Suspect]
     Active Substance: USTEKINUMAB
     Indication: Crohn^s disease
     Dosage: 90 MG,1 EVERY 8 WEEKS
     Route: 058
  2. VANCOMYCIN [Suspect]
     Active Substance: VANCOMYCIN
     Indication: Clostridium difficile infection
     Dosage: UNK
     Route: 065

REACTIONS (3)
  - Crohn^s disease [Not Recovered/Not Resolved]
  - Clostridium difficile infection [Not Recovered/Not Resolved]
  - Pain [Not Recovered/Not Resolved]
